FAERS Safety Report 5575017-4 (Version None)
Quarter: 2007Q4

REPORT INFORMATION
  Report Type: 
  Country: None (occurrence: None)
  Receive Date: 20071227
  Receipt Date: 20071220
  Transmission Date: 20080405
  Serious: Yes (Other)
  Sender: FDA-Public Use
  Company Number: US-GENENTECH-236651

PATIENT
  Sex: Female
  Weight: 63.5 kg

DRUGS (6)
  1. OMALIZUMAB [Suspect]
     Indication: ASTHMA
     Dosage: UNK, UNK
     Route: 058
     Dates: end: 20061006
  2. CLINDAMYCIN HCL [Concomitant]
     Indication: SINUSITIS
  3. CIPRO [Concomitant]
  4. PREDNISONE [Concomitant]
     Indication: SINUSITIS
  5. CEFTIN [Concomitant]
     Indication: SINUSITIS
  6. ZITHROMAX [Concomitant]
     Indication: SINUSITIS

REACTIONS (2)
  - ABORTION SPONTANEOUS [None]
  - DRUG EXPOSURE DURING PREGNANCY [None]
